FAERS Safety Report 24069306 (Version 5)
Quarter: 2024Q3

REPORT INFORMATION
  Report Type: Report from Study
  Country: DK (occurrence: DK)
  Receive Date: 20240710
  Receipt Date: 20240710
  Transmission Date: 20241017
  Serious: No
  Sender: ROCHE
  Company Number: DK-ROCHE-3472709

PATIENT
  Age: 51 Year
  Sex: Female

DRUGS (2)
  1. PHESGO [Suspect]
     Active Substance: HYALURONIDASE-ZZXF\PERTUZUMAB\TRASTUZUMAB
     Indication: Breast cancer
     Dosage: 600/600 MG SC EVERY 3. WEEKS
     Route: 058
     Dates: start: 20230331
  2. PREDNISOLONE [Concomitant]
     Active Substance: PREDNISOLONE
     Route: 048

REACTIONS (7)
  - Fatigue [Not Recovered/Not Resolved]
  - Vestibular disorder [Recovered/Resolved]
  - Skin toxicity [Unknown]
  - Vaginal haemorrhage [Unknown]
  - Mucosal disorder [Unknown]
  - Nail disorder [Unknown]
  - Paraesthesia [Unknown]

NARRATIVE: CASE EVENT DATE: 20230808
